FAERS Safety Report 7214032-1 (Version None)
Quarter: 2011Q1

REPORT INFORMATION
  Report Type: 
  Country: None (occurrence: None)
  Receive Date: 20110107
  Receipt Date: 20101228
  Transmission Date: 20110831
  Serious: No
  Sender: FDA-Public Use
  Company Number: US-BIOGENIDEC-2010BI044429

PATIENT
  Sex: Female

DRUGS (8)
  1. AVONEX [Suspect]
     Indication: MULTIPLE SCLEROSIS
     Route: 030
     Dates: start: 20071127, end: 20090325
  2. DETROL LA [Concomitant]
     Route: 048
  3. VITAMIN D [Concomitant]
  4. PROVIGIL [Concomitant]
  5. BACLOFEN [Concomitant]
  6. CALCIUM [Concomitant]
  7. WELLBUTRIN SR [Concomitant]
     Route: 048
  8. PAXIL [Concomitant]
     Route: 048

REACTIONS (3)
  - GASTROINTESTINAL DISORDER [None]
  - ASTHENIA [None]
  - GASTROINTESTINAL DISORDER POSTOPERATIVE [None]
